FAERS Safety Report 8357322-1 (Version None)
Quarter: 2012Q2

REPORT INFORMATION
  Report Type: 
  Country: None (occurrence: None)
  Receive Date: 20120514
  Receipt Date: 20120502
  Transmission Date: 20120825
  Serious: Yes (Other)
  Sender: FDA-Public Use
  Company Number: FR-JNJFOC-20120506551

PATIENT
  Sex: Male

DRUGS (11)
  1. ELIGARD [Concomitant]
     Route: 065
  2. EXELON [Concomitant]
     Route: 065
  3. LANSOPRAZOLE [Concomitant]
     Route: 065
  4. HALDOL [Suspect]
     Indication: CONFUSIONAL STATE
     Route: 048
     Dates: start: 20110401, end: 20120201
  5. OMEXEL [Concomitant]
     Route: 065
  6. PLAVIX [Concomitant]
     Route: 065
  7. LISINOPRIL [Concomitant]
     Route: 065
  8. TRAMADOL HYDROCHLORIDE [Concomitant]
     Route: 065
  9. PRAVASTATIN [Concomitant]
     Route: 065
  10. LYRICA [Concomitant]
     Route: 065
  11. VITAMIN D [Concomitant]
     Route: 065

REACTIONS (2)
  - COGNITIVE DISORDER [None]
  - EXTRAPYRAMIDAL DISORDER [None]
